FAERS Safety Report 17178921 (Version 2)
Quarter: 2024Q1

REPORT INFORMATION
  Report Type: Spontaneous
  Country: IT (occurrence: IT)
  Receive Date: 20191219
  Receipt Date: 20240329
  Transmission Date: 20240410
  Serious: Yes (Hospitalization, Other)
  Sender: FDA-Public Use
  Company Number: None

PATIENT
  Age: 10 Year
  Sex: Male

DRUGS (10)
  1. METHOTREXATE [Suspect]
     Active Substance: METHOTREXATE
     Indication: Prophylaxis against graft versus host disease
     Route: 065
  2. METHYLPREDNISOLONE [Suspect]
     Active Substance: METHYLPREDNISOLONE
     Indication: Product used for unknown indication
     Route: 065
  3. CYCLOSPORINE [Suspect]
     Active Substance: CYCLOSPORINE
     Indication: Bone marrow conditioning regimen
     Route: 065
  4. AZATHIOPRINE [Suspect]
     Active Substance: AZATHIOPRINE
     Indication: Graft versus host disease
     Dosage: 0.7 MG/KG, QD
     Route: 065
  5. CYCLOPHOSPHAMIDE [Suspect]
     Active Substance: CYCLOPHOSPHAMIDE
     Indication: Prophylaxis against graft versus host disease
  6. THYMOGLOBULINE [Suspect]
     Active Substance: LAPINE T-LYMPHOCYTE IMMUNE GLOBULIN
     Indication: Bone marrow transplant
     Route: 042
  7. GANCICLOVIR [Concomitant]
     Active Substance: GANCICLOVIR
     Indication: Cytomegalovirus infection reactivation
  8. CYCLOPHOSPHAMIDE [Suspect]
     Active Substance: CYCLOPHOSPHAMIDE
     Indication: Acute graft versus host disease
  9. CYCLOPHOSPHAMIDE [Suspect]
     Active Substance: CYCLOPHOSPHAMIDE
     Indication: Acute graft versus host disease
  10. METHOTREXATE (METHOTREXATE SODIUM) [Suspect]
     Active Substance: METHOTREXATE SODIUM
     Indication: Prophylaxis against graft versus host disease

REACTIONS (15)
  - Epstein-Barr virus infection reactivation [Recovered/Resolved]
  - Oral disorder [Recovered/Resolved]
  - Lymphadenopathy [Recovered/Resolved]
  - Cytomegalovirus test positive [Unknown]
  - Cytomegalovirus infection reactivation [Unknown]
  - Malaise [Recovered/Resolved]
  - Tonsillar hypertrophy [Recovered/Resolved]
  - Obstructive airways disorder [Recovered/Resolved]
  - Gastroenteritis cryptosporidial [Unknown]
  - Kaposi^s sarcoma [Recovered/Resolved]
  - Chronic graft versus host disease [Unknown]
  - Human herpesvirus 8 infection [Recovered/Resolved]
  - Pyrexia [Recovered/Resolved]
  - Acute graft versus host disease in intestine [Unknown]
  - Tonsillitis [Recovered/Resolved]
